FAERS Safety Report 8335821-6 (Version None)
Quarter: 2012Q2

REPORT INFORMATION
  Report Type: 
  Country: None (occurrence: None)
  Receive Date: 20120504
  Receipt Date: 20120425
  Transmission Date: 20120825
  Serious: Yes (Other)
  Sender: FDA-Public Use
  Company Number: US-SHIRE-ALL1-2012-02113

PATIENT
  Sex: Male

DRUGS (4)
  1. VYVANSE [Suspect]
     Indication: PRODUCT USED FOR UNKNOWN INDICATION
     Dosage: UNK (80 MG), UNKNOWN
     Route: 048
  2. MULTIPLE UNSPECIFIED MEDICATIONS [Concomitant]
     Indication: ABNORMAL BEHAVIOUR
     Dosage: UNK, UNKNOWN
     Route: 048
  3. VYVANSE [Suspect]
     Dosage: 70 MG, UNKNOWN
     Route: 048
  4. RISPERDAL [Concomitant]
     Indication: PRODUCT USED FOR UNKNOWN INDICATION
     Dosage: UNK, UNKNOWN
     Route: 048

REACTIONS (2)
  - OVERDOSE [None]
  - PANCREATITIS [None]
